FAERS Safety Report 19910551 (Version 1)
Quarter: 2021Q4

REPORT INFORMATION
  Report Type: Spontaneous
  Country: SG (occurrence: SG)
  Receive Date: 20211004
  Receipt Date: 20211004
  Transmission Date: 20220303
  Serious: Yes (Hospitalization, Other)
  Sender: FDA-Public Use
  Company Number: SG-PURACAP-SG-2021EPCLIT01023

PATIENT
  Age: 25 Year
  Sex: Female
  Weight: 53.5 kg

DRUGS (7)
  1. NAPROXEN SODIUM [Suspect]
     Active Substance: NAPROXEN SODIUM
     Indication: Product used for unknown indication
     Dosage: 20 TABLETS
     Route: 065
  2. ACETAMINOPHEN [Suspect]
     Active Substance: ACETAMINOPHEN
     Indication: Product used for unknown indication
     Dosage: 20 TABLETS
     Route: 065
  3. HALOPERIDOL [Suspect]
     Active Substance: HALOPERIDOL
     Indication: Product used for unknown indication
     Route: 030
  4. HALOPERIDOL [Suspect]
     Active Substance: HALOPERIDOL
     Route: 030
  5. PREGABALIN [Concomitant]
     Active Substance: PREGABALIN
     Dosage: 14 CAPSULES
     Route: 065
  6. DIPHENHYDRAMINE [Interacting]
     Active Substance: DIPHENHYDRAMINE
     Indication: Product used for unknown indication
     Route: 030
  7. TRIHEXYPHENIDYL [Interacting]
     Active Substance: TRIHEXYPHENIDYL
     Indication: Product used for unknown indication
     Route: 048

REACTIONS (4)
  - Oculogyric crisis [Recovered/Resolved]
  - Torticollis [Recovered/Resolved]
  - Drug interaction [Recovered/Resolved]
  - Overdose [Recovered/Resolved]
